FAERS Safety Report 21184661 (Version 1)
Quarter: 2022Q3

REPORT INFORMATION
  Report Type: Spontaneous
  Country: US (occurrence: None)
  Receive Date: 20220805
  Receipt Date: 20220805
  Transmission Date: 20221027
  Serious: Yes (Other)
  Sender: FDA-Public Use
  Company Number: None

PATIENT
  Age: 60 Year
  Sex: Male
  Weight: 108.86 kg

DRUGS (16)
  1. LENALIDOMIDE [Suspect]
     Active Substance: LENALIDOMIDE
     Indication: Myelofibrosis
     Dosage: 25 MG QD14 ON 7 OFF ORAL?
     Route: 048
  2. CARAFATE [Concomitant]
     Active Substance: SUCRALFATE
  3. VITAMIN B12 [Concomitant]
     Active Substance: CYANOCOBALAMIN
  4. DEXAMETHASONE [Concomitant]
     Active Substance: DEXAMETHASONE
  5. ELIQUIS [Concomitant]
     Active Substance: APIXABAN
  6. FENTANYL [Concomitant]
     Active Substance: FENTANYL
  7. FOLIC ACID [Concomitant]
     Active Substance: FOLIC ACID
  8. HYDROMORPHONE [Concomitant]
     Active Substance: HYDROMORPHONE
  9. LISINOPRIL [Concomitant]
     Active Substance: LISINOPRIL
  10. LYRICA [Concomitant]
     Active Substance: PREGABALIN
  11. MELATONIN [Concomitant]
     Active Substance: MELATONIN
  12. NORVASC [Concomitant]
     Active Substance: AMLODIPINE BESYLATE
  13. PANTOPRAZOLE [Concomitant]
     Active Substance: PANTOPRAZOLE
  14. SENOKOT [Concomitant]
     Active Substance: SENNOSIDES
  15. TEMAZEPAM [Concomitant]
     Active Substance: TEMAZEPAM
  16. VELCADE [Concomitant]
     Active Substance: BORTEZOMIB

REACTIONS (2)
  - Thrombosis [None]
  - Fatigue [None]

NARRATIVE: CASE EVENT DATE: 20220726
